FAERS Safety Report 4428555-1 (Version None)
Quarter: 2004Q3

REPORT INFORMATION
  Report Type: 
  Country: None (occurrence: None)
  Receive Date: 20040813
  Receipt Date: 20040730
  Transmission Date: 20050211
  Serious: Yes (Death, Life-Threatening)
  Sender: FDA-Public Use
  Company Number: 200410530BCA

PATIENT
  Age: 71 Year
  Sex: Male

DRUGS (7)
  1. PLASBUMIN-25 [Suspect]
     Indication: BLOOD PRESSURE DECREASED
     Dosage: SEE IMAGE
     Route: 036
     Dates: start: 20040703
  2. PLASBUMIN-25 [Suspect]
     Indication: HYPOTENSION
     Dosage: SEE IMAGE
     Route: 036
     Dates: start: 20040703
  3. PLASBUMIN-25 [Suspect]
     Indication: BLOOD PRESSURE DECREASED
     Dosage: SEE IMAGE
     Route: 036
     Dates: start: 20040703
  4. PLASBUMIN-25 [Suspect]
     Indication: HYPOTENSION
     Dosage: SEE IMAGE
     Route: 036
     Dates: start: 20040703
  5. PLASBUMIN-25 [Suspect]
     Indication: BLOOD PRESSURE DECREASED
     Dosage: SEE IMAGE
     Route: 036
     Dates: start: 20040709
  6. PLASBUMIN-25 [Suspect]
     Indication: HYPOTENSION
     Dosage: SEE IMAGE
     Route: 036
     Dates: start: 20040709
  7. PLASBUMIN-25 [Suspect]

REACTIONS (10)
  - ACIDOSIS [None]
  - ANAPHYLACTIC REACTION [None]
  - CHILLS [None]
  - CULTURE POSITIVE [None]
  - PNEUMONIA ESCHERICHIA [None]
  - RENAL IMPAIRMENT [None]
  - SHOCK [None]
  - STAPHYLOCOCCAL INFECTION [None]
  - URINARY TRACT INFECTION ENTEROCOCCAL [None]
  - WOUND INFECTION [None]
